FAERS Safety Report 14204006 (Version 1)
Quarter: 2017Q4

REPORT INFORMATION
  Report Type: Spontaneous
  Country: US (occurrence: US)
  Receive Date: 20171117
  Receipt Date: 20171117
  Transmission Date: 20180321
  Serious: Yes (Death)
  Sender: FDA-Public Use
  Company Number: None

PATIENT
  Age: 65 Year
  Sex: Female

DRUGS (14)
  1. LEVOTHYROXINE SODIUM. [Concomitant]
     Active Substance: LEVOTHYROXINE SODIUM
  2. MEROPENEM. [Concomitant]
     Active Substance: MEROPENEM
  3. EPOPROSTENIL SODIUM [Concomitant]
  4. BUDESONIDE. [Concomitant]
     Active Substance: BUDESONIDE
  5. FAMOTIDINE. [Concomitant]
     Active Substance: FAMOTIDINE
  6. SODIUM FERRIC GLUCONATE [Concomitant]
     Active Substance: SODIUM FERRIC GLUCONATE COMPLEX
  7. OXYCODONE [Concomitant]
     Active Substance: OXYCODONE
  8. SILDENAFIL. [Suspect]
     Active Substance: SILDENAFIL
     Indication: PULMONARY ARTERIAL HYPERTENSION
     Route: 048
  9. POTASSIUM CHLORIDE. [Concomitant]
     Active Substance: POTASSIUM CHLORIDE
  10. LETARIS [Concomitant]
     Active Substance: AMBRISENTAN
  11. CALCIUM ACETATE. [Concomitant]
     Active Substance: CALCIUM ACETATE
  12. NORVASC [Concomitant]
     Active Substance: AMLODIPINE BESYLATE
  13. METOPROLOL TARTRATE. [Concomitant]
     Active Substance: METOPROLOL TARTRATE
  14. CALCITRIOL. [Concomitant]
     Active Substance: CALCITRIOL

REACTIONS (1)
  - Death [None]
